FAERS Safety Report 17529721 (Version 1)
Quarter: 2020Q1

REPORT INFORMATION
  Report Type: Report from Study
  Country: JP (occurrence: JP)
  Receive Date: 20200312
  Receipt Date: 20200312
  Transmission Date: 20200409
  Serious: Yes (Hospitalization, Other)
  Sender: FDA-Public Use
  Company Number: JP-AMGEN-JPNCT2020039747

PATIENT
  Age: 43 Year
  Sex: Male

DRUGS (25)
  1. DARBEPOETIN ALFA [Suspect]
     Active Substance: DARBEPOETIN ALFA
     Indication: MYELODYSPLASTIC SYNDROME
     Dosage: 60 MICROGRAM, QWK
     Route: 058
     Dates: start: 20180721, end: 20180811
  2. DARBEPOETIN ALFA [Suspect]
     Active Substance: DARBEPOETIN ALFA
     Dosage: 60 MICROGRAM, Q3WK
     Route: 058
     Dates: start: 20181208, end: 20190316
  3. DARBEPOETIN ALFA [Suspect]
     Active Substance: DARBEPOETIN ALFA
     Dosage: 60 MICROGRAM, QWK
     Route: 058
     Dates: start: 20190518, end: 20190705
  4. VIDAZA [Concomitant]
     Active Substance: AZACITIDINE
     Indication: MYELODYSPLASTIC SYNDROME
     Dosage: 100 MG
     Route: 065
     Dates: end: 20190317
  5. SHAKUYAKUKANZOTO [Concomitant]
     Active Substance: HERBALS
     Dosage: UNK UNK, PRN
     Route: 048
     Dates: end: 20180805
  6. E KEPPRA [Concomitant]
     Active Substance: LEVETIRACETAM
     Dosage: UNK
     Route: 065
     Dates: end: 20180805
  7. DARBEPOETIN ALFA [Suspect]
     Active Substance: DARBEPOETIN ALFA
     Dosage: 60 MICROGRAM, Q3WK
     Route: 058
     Dates: start: 20190420, end: 20190511
  8. CALONAL [Concomitant]
     Active Substance: ACETAMINOPHEN
     Dosage: UNK
     Route: 048
  9. SENNOSIDE A+B [Concomitant]
     Active Substance: SENNOSIDES A AND B
     Dosage: UNK
     Route: 048
  10. DARBEPOETIN ALFA [Suspect]
     Active Substance: DARBEPOETIN ALFA
     Dosage: 60 MICROGRAM, QWK
     Route: 058
     Dates: start: 20190323, end: 20190406
  11. ZOLPIDEM TARTRATE. [Concomitant]
     Active Substance: ZOLPIDEM TARTRATE
     Dosage: UNK
     Route: 048
  12. LOXOPROFEN NA [Concomitant]
     Active Substance: LOXOPROFEN SODIUM
     Dosage: UNK
  13. DARBEPOETIN ALFA [Suspect]
     Active Substance: DARBEPOETIN ALFA
     Dosage: 60 MICROGRAM
     Route: 058
     Dates: start: 20190719
  14. DOBUPUM [Concomitant]
     Active Substance: DOBUTAMINE HYDROCHLORIDE
     Indication: CARDIAC FAILURE CHRONIC
     Dosage: UNK
     Route: 065
     Dates: end: 20190625
  15. LANSOPRAZOLE. [Concomitant]
     Active Substance: LANSOPRAZOLE
     Dosage: UNK
     Route: 048
  16. TAZOPIPE [Concomitant]
     Active Substance: PIPERACILLIN SODIUM\TAZOBACTAM SODIUM
     Dosage: UNK
     Route: 065
     Dates: end: 20190716
  17. DARBEPOETIN ALFA [Suspect]
     Active Substance: DARBEPOETIN ALFA
     Dosage: 60 MICROGRAM, QWK
     Route: 058
     Dates: start: 20181020, end: 20181027
  18. ACETAMINOPHEN. [Concomitant]
     Active Substance: ACETAMINOPHEN
     Dosage: UNK
     Route: 048
  19. TANADOPA [Concomitant]
     Active Substance: DOCARPAMINE
     Indication: CARDIAC FAILURE CHRONIC
     Dosage: UNK
     Route: 048
  20. DIAZEPAM. [Concomitant]
     Active Substance: DIAZEPAM
     Dosage: UNK
     Route: 065
     Dates: end: 20180805
  21. METOCLOPRAMIDE. [Concomitant]
     Active Substance: METOCLOPRAMIDE
     Dosage: UNK
     Route: 048
     Dates: end: 20190527
  22. MEROPENEM. [Concomitant]
     Active Substance: MEROPENEM
     Dosage: UNK
     Route: 065
  23. DARBEPOETIN ALFA [Suspect]
     Active Substance: DARBEPOETIN ALFA
     Dosage: 60 MICROGRAM, QWK
     Route: 058
     Dates: start: 20180825, end: 20180922
  24. AMLODIPINE [Concomitant]
     Active Substance: AMLODIPINE BESYLATE
     Indication: HYPERTENSION
     Dosage: UNK
     Route: 048
  25. FINIBAX [Concomitant]
     Active Substance: DORIPENEM MONOHYDRATE
     Dosage: UNK
     Route: 065
     Dates: end: 20190627

REACTIONS (3)
  - Appendicitis [Recovering/Resolving]
  - Pneumonia [Recovered/Resolved]
  - Epilepsy [Recovering/Resolving]

NARRATIVE: CASE EVENT DATE: 20180731
